FAERS Safety Report 9025143 (Version 1)
Quarter: 2013Q1

REPORT INFORMATION
  Report Type: Other
  Country: GB (occurrence: GB)
  Receive Date: 20130122
  Receipt Date: 20130122
  Transmission Date: 20140127
  Serious: Yes (Other)
  Sender: FDA-Public Use
  Company Number: GB-WATSON-2013-00689

PATIENT
  Age: 41 Year
  Sex: Male

DRUGS (2)
  1. TERBINAFINE HYDROCHLORIDE (UNKNOWN) [Suspect]
     Indication: ONYCHOMYCOSIS
     Dosage: 250 MG, DAILY, TAKE ONCE A DAY
     Route: 048
     Dates: start: 20120903, end: 20121130
  2. PREGABALIN [Concomitant]
     Indication: NEURALGIA
     Dosage: 50 MG, TID
     Route: 048
     Dates: start: 20100826

REACTIONS (2)
  - Headache [Recovered/Resolved]
  - Mood swings [Recovered/Resolved]
